FAERS Safety Report 8437017-6 (Version None)
Quarter: 2012Q2

REPORT INFORMATION
  Report Type: 
  Country: None (occurrence: None)
  Receive Date: 20120614
  Receipt Date: 20111212
  Transmission Date: 20120825
  Serious: No
  Sender: FDA-Public Use
  Company Number: US-AMGEN-USASP2011066106

PATIENT
  Age: 54 Year
  Sex: Female

DRUGS (4)
  1. TELAPREVIR [Concomitant]
  2. INTERFERON [Concomitant]
  3. ARANESP [Suspect]
     Indication: HEPATITIS C
     Dosage: 25 MUG, QWK
     Dates: start: 20111205
  4. RIBAVIRIN [Concomitant]
     Dates: end: 20111201

REACTIONS (4)
  - SPEECH DISORDER [None]
  - DISTURBANCE IN ATTENTION [None]
  - FEELING ABNORMAL [None]
  - FATIGUE [None]
